FAERS Safety Report 10154712 (Version 1)
Quarter: 2014Q2

REPORT INFORMATION
  Report Type: Spontaneous
  Country: US (occurrence: None)
  Receive Date: 20140505
  Receipt Date: 20140505
  Transmission Date: 20141212
  Serious: Yes (Other)
  Sender: FDA-Public Use
  Company Number: None

PATIENT
  Age: 20 Month
  Sex: Female

DRUGS (2)
  1. KEPPRA [Suspect]
     Indication: EPILEPSY
     Dosage: 180, 6 ML QHS PO
  2. KEPPRA [Suspect]
     Indication: CONVULSION
     Dosage: 180, 6 ML QHS PO

REACTIONS (1)
  - Convulsion [None]
